FAERS Safety Report 8526074 (Version 3)
Quarter: 2013Q1

REPORT INFORMATION
  Report Type: Spontaneous
  Country: US (occurrence: None)
  Receive Date: 20120418
  Receipt Date: 20130311
  Transmission Date: 20140127
  Serious: Yes (Other)
  Sender: FDA-Public Use
  Company Number: AUR-APL-2012-01794

PATIENT
  Age: 63 Year
  Sex: Female
  Weight: 68.03 kg

DRUGS (4)
  1. VENLAFAXINE [Suspect]
     Indication: THINKING ABNORMAL
     Dosage: 75 MG (75 MG,  1 IN 1 D), UNKNOWN
     Dates: start: 2012
  2. EFFEXOR [Suspect]
     Indication: THINKING ABNORMAL
     Dosage: 75 MG (75 MG, 1 IN 1 D), UNKNOWN
  3. LEVOTHYROXINE (LEVOTHYROXINE) [Concomitant]
  4. TRAZODONE (TRAZODONE) [Concomitant]

REACTIONS (12)
  - Diplopia [None]
  - Dyspnoea [None]
  - Throat tightness [None]
  - Dizziness [None]
  - Retching [None]
  - Renal pain [None]
  - Influenza like illness [None]
  - Headache [None]
  - Abdominal discomfort [None]
  - Nervousness [None]
  - Anxiety [None]
  - Product substitution issue [None]
